FAERS Safety Report 7745649-3 (Version None)
Quarter: 2011Q3

REPORT INFORMATION
  Report Type: 
  Country: None (occurrence: None)
  Receive Date: 20110913
  Receipt Date: 20110816
  Transmission Date: 20111222
  Serious: No
  Sender: FDA-Public Use
  Company Number: US-BAYER-2011-077925

PATIENT
  Age: 79 Year
  Sex: Male
  Weight: 75 kg

DRUGS (4)
  1. ALEVE (CAPLET) [Suspect]
     Indication: SLEEP DISORDER THERAPY
     Dosage: 1 DF, BID
     Route: 048
     Dates: start: 20110815, end: 20110815
  2. PREDNISONE [Concomitant]
     Indication: PRODUCT USED FOR UNKNOWN INDICATION
  3. COUMADIN [Concomitant]
     Indication: PRODUCT USED FOR UNKNOWN INDICATION
     Dosage: UNK
  4. PLAQUENIL [Concomitant]
     Indication: PRODUCT USED FOR UNKNOWN INDICATION

REACTIONS (1)
  - INSOMNIA [None]
